FAERS Safety Report 5830944-5 (Version None)
Quarter: 2008Q3

REPORT INFORMATION
  Report Type: 
  Country: None (occurrence: None)
  Receive Date: 20080801
  Receipt Date: 20080219
  Transmission Date: 20090109
  Serious: No
  Sender: FDA-Public Use
  Company Number: US-BRISTOL-MYERS SQUIBB COMPANY-14080550

PATIENT
  Sex: Male

DRUGS (1)
  1. COUMADIN [Suspect]
     Dates: start: 20070701

REACTIONS (1)
  - HEPATIC ENZYME INCREASED [None]
